FAERS Safety Report 10404122 (Version 1)
Quarter: 2014Q1

REPORT INFORMATION
  Report Type: Spontaneous
  Country: US (occurrence: None)
  Receive Date: 20130815
  Receipt Date: 20130815
  Transmission Date: 20141002
  Serious: Yes (Other)
  Sender: FDA-Public Use
  Company Number: ADR-2013-00333

PATIENT
  Sex: Female

DRUGS (1)
  1. BACLOFEN UNKNOWN (BACLOFEN INTRATHECAL) [Suspect]
     Indication: MUSCLE SPASTICITY

REACTIONS (5)
  - Drug withdrawal syndrome [None]
  - Nausea [None]
  - Post lumbar puncture syndrome [None]
  - Fatigue [None]
  - Unevaluable event [None]
